FAERS Safety Report 15394659 (Version 1)
Quarter: 2018Q3

REPORT INFORMATION
  Report Type: Spontaneous
  Country: RS (occurrence: RS)
  Receive Date: 20180918
  Receipt Date: 20180918
  Transmission Date: 20181010
  Serious: Yes (Life-Threatening)
  Sender: FDA-Public Use
  Company Number: RS-TEVA-2018-RS-953685

PATIENT
  Age: 40 Year
  Sex: Female

DRUGS (6)
  1. ONDASAN 8 MG [Concomitant]
     Indication: NEOPLASM MALIGNANT
     Dosage: 1 PER 21 DAYS
     Route: 042
  2. AVASTIN [Concomitant]
     Active Substance: BEVACIZUMAB
     Indication: NEOPLASM MALIGNANT
     Dosage: 600 MG PER 21 DAYS
     Route: 042
     Dates: start: 20180109, end: 20180820
  3. SINOXAL [Suspect]
     Active Substance: OXALIPLATIN
     Indication: NEOPLASM MALIGNANT
     Dosage: FREQUENCY TIMES?21 DAYS
     Route: 042
     Dates: start: 20180109, end: 20180820
  4. SINOXAL [Suspect]
     Active Substance: OXALIPLATIN
     Indication: HEPATIC CANCER
  5. AVASTIN [Concomitant]
     Active Substance: BEVACIZUMAB
     Indication: HEPATIC CANCER
  6. DEXASON [Concomitant]
     Active Substance: DEXAMETHASONE
     Indication: NEOPLASM MALIGNANT
     Route: 042

REACTIONS (3)
  - Pruritus [Recovered/Resolved]
  - Erythema [Recovered/Resolved]
  - Swelling [Recovered/Resolved]
